FAERS Safety Report 4932191-8 (Version None)
Quarter: 2006Q1

REPORT INFORMATION
  Report Type: 
  Country: None (occurrence: None)
  Receive Date: 20060228
  Receipt Date: 20060221
  Transmission Date: 20060701
  Serious: Yes (Hospitalization)
  Sender: FDA-Public Use
  Company Number: TAP2006Q00348

PATIENT
  Age: 33 Year
  Sex: Female
  Weight: 84 kg

DRUGS (1)
  1. LUPRON DEPOT-3 [Suspect]
     Indication: ENDOMETRIOSIS
     Dosage: 3.75 MG, 1 IN 1 M, INTRAMUSCULAR
     Route: 030
     Dates: start: 20060109, end: 20060206

REACTIONS (7)
  - ANOREXIA [None]
  - BLOOD CHOLESTEROL INCREASED [None]
  - BLOOD TRIGLYCERIDES INCREASED [None]
  - HOT FLUSH [None]
  - OEDEMA [None]
  - PANIC ATTACK [None]
  - WEIGHT INCREASED [None]
